FAERS Safety Report 4616651-5 (Version None)
Quarter: 2005Q1

REPORT INFORMATION
  Report Type: 
  Country: None (occurrence: None)
  Receive Date: 20050321
  Receipt Date: 20031223
  Transmission Date: 20050727
  Serious: Yes (Hospitalization)
  Sender: FDA-Public Use
  Company Number: 7032

PATIENT
  Age: 45 Year
  Sex: Male

DRUGS (3)
  1. CARBOPLATIN [Suspect]
     Indication: NON-SMALL CELL LUNG CANCER
     Dosage: 780 MG IV
     Route: 042
     Dates: start: 20031016, end: 20031016
  2. PACLITAXEL [Suspect]
     Indication: NON-SMALL CELL LUNG CANCER
     Dosage: 400 MG IV
     Route: 042
     Dates: start: 20031016, end: 20031016
  3. DEXAMETHASONE [Concomitant]

REACTIONS (2)
  - ABSCESS [None]
  - SKIN INFECTION [None]
